FAERS Safety Report 6062803-X (Version None)
Quarter: 2009Q1

REPORT INFORMATION
  Report Type: 
  Country: None (occurrence: None)
  Receive Date: 20090202
  Receipt Date: 20090202
  Transmission Date: 20090719
  Serious: Yes (Life-Threatening)
  Sender: FDA-Public Use
  Company Number: None

PATIENT
  Age: 48 Year
  Sex: Female
  Weight: 100.6985 kg

DRUGS (3)
  1. VINORELBINE [Suspect]
     Indication: BREAST CANCER METASTATIC
     Dosage: 25MG/KG EVERY TWO WEEKS IV BOLUS
     Route: 040
     Dates: start: 20090107, end: 20090128
  2. AVASTIN [Suspect]
     Dosage: 10MG/KG WEEKLY IV DRIP
     Route: 041
     Dates: start: 20090107, end: 20090128
  3. TRASTUZUMAB [Suspect]
     Dosage: 2MG/KG WEEKLY IV DRIP
     Route: 041
     Dates: start: 20090107, end: 20090128

REACTIONS (2)
  - NEUTROPHIL COUNT DECREASED [None]
  - WHITE BLOOD CELL COUNT DECREASED [None]
